FAERS Safety Report 8260901-3 (Version None)
Quarter: 2012Q2

REPORT INFORMATION
  Report Type: 
  Country: None (occurrence: None)
  Receive Date: 20120405
  Receipt Date: 20120328
  Transmission Date: 20120825
  Serious: Yes (Other)
  Sender: FDA-Public Use
  Company Number: US-BAYER-2012-023967

PATIENT
  Sex: Female
  Weight: 81.633 kg

DRUGS (2)
  1. MULTI-VITAMINS [Concomitant]
  2. MIRENA [Suspect]
     Indication: CONTRACEPTION
     Dosage: UNK
     Dates: start: 20110111

REACTIONS (5)
  - MATERNAL EXPOSURE DURING PREGNANCY [None]
  - ADNEXA UTERI MASS [None]
  - URINARY TRACT INFECTION [None]
  - ECTOPIC PREGNANCY WITH INTRAUTERINE DEVICE [None]
  - ECTOPIC PREGNANCY TERMINATION [None]
